FAERS Safety Report 8024474-2 (Version None)
Quarter: 2012Q1

REPORT INFORMATION
  Report Type: 
  Country: None (occurrence: None)
  Receive Date: 20120103
  Receipt Date: 20111220
  Transmission Date: 20120608
  Serious: Yes (Death)
  Sender: FDA-Public Use
  Company Number: UTC-013795

PATIENT
  Age: 45 Year
  Sex: Male
  Weight: 79.54 kg

DRUGS (4)
  1. ADCIRCA [Concomitant]
  2. LETAIRIS [Concomitant]
  3. DIURETICS (DIURETICS) [Concomitant]
  4. REMODULIN [Suspect]
     Indication: VENTRICULAR SEPTAL DEFECT
     Dosage: 220.32 UG/KG (0.153 UG/KG, 1 IN1 MIN), INTRAVENOUS
     Route: 042
     Dates: start: 20100726

REACTIONS (1)
  - DEATH [None]
